FAERS Safety Report 20753173 (Version 1)
Quarter: 2022Q2

REPORT INFORMATION
  Report Type: Spontaneous
  Country: US (occurrence: None)
  Receive Date: 20220426
  Receipt Date: 20220426
  Transmission Date: 20220721
  Serious: No
  Sender: FDA-Public Use
  Company Number: US-ROCHE-3021845

PATIENT
  Sex: Male

DRUGS (5)
  1. ESBRIET [Suspect]
     Active Substance: PIRFENIDONE
     Indication: Idiopathic pulmonary fibrosis
     Dosage: TAKE ONE TABLET BY MOUTH THREE TIMES A DAY WITH FOOD.
     Route: 048
     Dates: start: 20190415
  2. ATORVASTATIN [Concomitant]
     Active Substance: ATORVASTATIN
  3. LAMOTRIGINE [Concomitant]
     Active Substance: LAMOTRIGINE
  4. METOPROLOL [Concomitant]
     Active Substance: METOPROLOL
  5. VERAPAMIL HCL [Concomitant]
     Active Substance: VERAPAMIL HYDROCHLORIDE

REACTIONS (1)
  - Decreased appetite [Unknown]
